FAERS Safety Report 8889522 (Version 1)
Quarter: 2012Q4

REPORT INFORMATION
  Report Type: 
  Country: GB (occurrence: GB)
  Receive Date: 20121107
  Receipt Date: 20121107
  Transmission Date: 20130627
  Serious: Yes (Other)
  Sender: FDA-Public Use
  Company Number: PHHY2012GB100736

PATIENT
  Sex: Female

DRUGS (6)
  1. BISOPROLOL [Suspect]
     Indication: HYPERTENSION
     Dosage: 2.5 mg, QD
     Route: 048
  2. AMITRIPTYLINE [Concomitant]
     Dosage: 10 mg, UNK
     Route: 048
  3. PARACETAMOL [Concomitant]
     Dosage: 1 DF, TID
     Route: 048
  4. IBUPROFEN [Concomitant]
     Dosage: 400 mg, TID
     Route: 048
  5. LANSOPRAZOLE [Concomitant]
     Dosage: 15 mg, QD
     Route: 048
  6. RAMIPRIL [Concomitant]
     Dosage: 10 mg, UNK

REACTIONS (2)
  - Dry eye [Not Recovered/Not Resolved]
  - Rash [Not Recovered/Not Resolved]
